FAERS Safety Report 16880803 (Version 1)
Quarter: 2019Q4

REPORT INFORMATION
  Report Type: Spontaneous
  Country: CA (occurrence: CA)
  Receive Date: 20191003
  Receipt Date: 20191003
  Transmission Date: 20200122
  Serious: Yes (Disabling, Other)
  Sender: FDA-Public Use
  Company Number: CA-009507513-1910CAN000314

PATIENT
  Age: 2 Year
  Sex: Male

DRUGS (2)
  1. VENTOLIN [Concomitant]
     Active Substance: ALBUTEROL SULFATE
     Dosage: UNK
  2. SINGULAIR [Suspect]
     Active Substance: MONTELUKAST SODIUM
     Indication: ASTHMA
     Dosage: STRENGTH/DOSAGE REPORTED AS 5/30
     Route: 048
     Dates: start: 2014, end: 2018

REACTIONS (1)
  - Autism spectrum disorder [Recovered/Resolved]

NARRATIVE: CASE EVENT DATE: 2014
